FAERS Safety Report 7670294-8 (Version None)
Quarter: 2011Q3

REPORT INFORMATION
  Report Type: 
  Country: None (occurrence: None)
  Receive Date: 20110809
  Receipt Date: 20110802
  Transmission Date: 20111222
  Serious: Yes (Hospitalization, Other)
  Sender: FDA-Public Use
  Company Number: AU-BIOGENIDEC-2011BI022825

PATIENT
  Age: 54 Year
  Sex: Female

DRUGS (14)
  1. DOTHIEPIN HYDROCHLORIDE [Concomitant]
     Indication: DEPRESSION
     Route: 048
  2. GLUCOSAMINE [Concomitant]
     Indication: ARTHRALGIA
     Route: 048
  3. SIMVASTATIN [Concomitant]
     Indication: HYPERCHOLESTEROLAEMIA
     Route: 048
  4. CITALOPRAM HYDROBROMIDE [Concomitant]
     Indication: DEPRESSION
     Route: 048
  5. OXYBUTYIN [Concomitant]
     Indication: MULTIPLE SCLEROSIS
     Route: 048
  6. TYSABRI [Suspect]
     Indication: RELAPSING-REMITTING MULTIPLE SCLEROSIS
     Route: 042
     Dates: start: 20090214
  7. ATENOLOL [Concomitant]
     Indication: HYPERTENSION
     Route: 048
  8. EZETIMIBE [Concomitant]
     Indication: HYPERCHOLESTEROLAEMIA
     Route: 048
  9. CHOLECALCIFEROL [Concomitant]
     Indication: MULTIPLE SCLEROSIS
     Route: 048
  10. METFORMIN HCL [Concomitant]
     Indication: DIABETES MELLITUS
     Route: 048
  11. QUINAPRIL HCL [Concomitant]
     Indication: HYPERTENSION
     Route: 048
  12. BACLOFEN [Concomitant]
     Indication: MULTIPLE SCLEROSIS
     Route: 048
  13. PANTAPRAZOLE [Concomitant]
     Indication: PROPHYLAXIS
     Route: 048
  14. LEVCANIDIPINE [Concomitant]
     Indication: HYPERTENSION
     Route: 048

REACTIONS (3)
  - SUICIDE ATTEMPT [None]
  - MULTIPLE DRUG OVERDOSE [None]
  - LUNG CONSOLIDATION [None]
